FAERS Safety Report 17428301 (Version 2)
Quarter: 2020Q1

REPORT INFORMATION
  Report Type: Spontaneous
  Country: US (occurrence: US)
  Receive Date: 20200218
  Receipt Date: 20200311
  Transmission Date: 20200409
  Serious: Yes (Hospitalization)
  Sender: FDA-Public Use
  Company Number: US-GW PHARMA-202002USGW00564

PATIENT

DRUGS (2)
  1. EPIDIOLEX [Suspect]
     Active Substance: CANNABIDIOL
     Indication: EPILEPSY
     Dosage: 140 MILLIGRAM, BID
     Route: 048
     Dates: start: 20190225, end: 202002
  2. EPIDIOLEX [Suspect]
     Active Substance: CANNABIDIOL
     Dosage: 180 MILLIGRAM, BID (INCREASED DOSE)
     Route: 048
     Dates: start: 202002

REACTIONS (2)
  - Seizure [Recovered/Resolved]
  - Viral infection [Unknown]

NARRATIVE: CASE EVENT DATE: 20200210
